FAERS Safety Report 8480630-0 (Version None)
Quarter: 2012Q3

REPORT INFORMATION
  Report Type: 
  Country: None (occurrence: None)
  Receive Date: 20120702
  Receipt Date: 20120627
  Transmission Date: 20120928
  Serious: No
  Sender: FDA-Public Use
  Company Number: US-BIOGENIDEC-2012BI022947

PATIENT
  Age: 47 Year
  Sex: Female

DRUGS (4)
  1. AVONEX [Suspect]
     Indication: MULTIPLE SCLEROSIS
     Route: 030
     Dates: start: 20001101, end: 20030101
  2. AVONEX [Suspect]
     Route: 030
     Dates: start: 20120601
  3. AVONEX [Suspect]
     Route: 030
     Dates: start: 20030101, end: 20080101
  4. AVONEX [Suspect]
     Route: 030
     Dates: start: 20091107, end: 20120601

REACTIONS (1)
  - UNDERDOSE [None]
